FAERS Safety Report 7824699-2 (Version None)
Quarter: 2011Q4

REPORT INFORMATION
  Report Type: 
  Country: None (occurrence: None)
  Receive Date: 20111019
  Receipt Date: 20111003
  Transmission Date: 20120403
  Serious: Yes (Hospitalization, Other)
  Sender: FDA-Public Use
  Company Number: CH-US-EMD SERONO, INC.-7036714

PATIENT
  Sex: Female
  Weight: 66 kg

DRUGS (16)
  1. IBRUPROFEN [Concomitant]
  2. MARCUMAR [Concomitant]
     Dates: start: 20110601
  3. REBIF [Suspect]
     Route: 058
     Dates: start: 20111003
  4. NEBIVOLOL HCL [Concomitant]
     Indication: HYPERTENSION
     Route: 048
  5. LISPIDRIL [Concomitant]
     Indication: HYPERTENSION
     Dosage: 10/12.5
     Route: 048
  6. CALCIMAGON KAUDRAGEES [Concomitant]
     Dates: start: 20110601
  7. PLAQUENIL [Concomitant]
     Dates: start: 20110601
  8. LISTRIL [Concomitant]
     Dates: start: 20110601
  9. LORAZEPAM [Concomitant]
     Indication: ANXIETY
     Dates: start: 20110601
  10. REBIF [Suspect]
     Indication: SECONDARY PROGRESSIVE MULTIPLE SCLEROSIS
     Route: 058
     Dates: start: 19990503, end: 20110523
  11. PANTOPRAZOLE SODIUM [Concomitant]
     Dates: start: 20110601
  12. ACETAMINOPHEN [Concomitant]
     Indication: INFLUENZA LIKE ILLNESS
  13. BECOZYM [Concomitant]
     Dates: start: 20110601
  14. ACTITUM FOLLICUM [Concomitant]
     Dates: start: 20110601
  15. VITAMIN B COMPLEX CAP [Concomitant]
     Dates: start: 20110601
  16. ATORVASTATIN CALCIUM [Concomitant]
     Dates: start: 20110601

REACTIONS (12)
  - PULMONARY ARTERIAL HYPERTENSION [None]
  - COLLAGEN DISORDER [None]
  - OSTEOPOROSIS [None]
  - MYOCARDIAL INFARCTION [None]
  - INAPPROPRIATE SCHEDULE OF DRUG ADMINISTRATION [None]
  - CORONARY ARTERY EMBOLISM [None]
  - OSTEONECROSIS [None]
  - INJECTION SITE ERYTHEMA [None]
  - MONOCLONAL GAMMOPATHY [None]
  - ERYTHEMA [None]
  - SYSTEMIC LUPUS ERYTHEMATOSUS [None]
  - INJECTION SITE DISCOLOURATION [None]
